FAERS Safety Report 21897917 (Version 5)
Quarter: 2025Q2

REPORT INFORMATION
  Report Type: Spontaneous
  Country: US (occurrence: US)
  Receive Date: 20230123
  Receipt Date: 20250421
  Transmission Date: 20250716
  Serious: Yes (Hospitalization)
  Sender: PFIZER
  Company Number: US-PFIZER INC-PV202300011543

PATIENT
  Age: 75 Year
  Sex: Male

DRUGS (3)
  1. INLYTA [Suspect]
     Active Substance: AXITINIB
     Dates: end: 20230112
  2. INLYTA [Suspect]
     Active Substance: AXITINIB
  3. LEVOTHYROXINE [Concomitant]
     Active Substance: LEVOTHYROXINE

REACTIONS (5)
  - Urinary tract infection [Unknown]
  - Dyspnoea [Recovered/Resolved]
  - Abdominal discomfort [Recovered/Resolved]
  - Thyroid function test abnormal [Unknown]
  - Blood pressure fluctuation [Unknown]
